FAERS Safety Report 7955323-6 (Version None)
Quarter: 2011Q4

REPORT INFORMATION
  Report Type: 
  Country: None (occurrence: None)
  Receive Date: 20111202
  Receipt Date: 20111121
  Transmission Date: 20120403
  Serious: Yes (Hospitalization, Disabling)
  Sender: FDA-Public Use
  Company Number: US-ELI_LILLY_AND_COMPANY-US201009002801

PATIENT
  Sex: Female
  Weight: 47.2 kg

DRUGS (2)
  1. FORTEO [Suspect]
     Indication: OSTEOPOROSIS
     Dosage: 20 UG, DAILY (1/D)
     Route: 058
     Dates: start: 20100428, end: 20100906
  2. FORTEO [Suspect]
     Dosage: 20 UG, QD
     Route: 058

REACTIONS (10)
  - EATING DISORDER [None]
  - MEDICAL DEVICE REMOVAL [None]
  - DIPLEGIA [None]
  - PATHOLOGICAL FRACTURE [None]
  - NAUSEA [None]
  - NERVE COMPRESSION [None]
  - DYSGEUSIA [None]
  - HYPOAESTHESIA [None]
  - DIARRHOEA [None]
  - WEIGHT DECREASED [None]
